FAERS Safety Report 21338342 (Version 1)
Quarter: 2022Q3

REPORT INFORMATION
  Report Type: Spontaneous
  Country: DK (occurrence: DK)
  Receive Date: 20220915
  Receipt Date: 20220915
  Transmission Date: 20221026
  Serious: Yes (Disabling)
  Sender: FDA-Public Use
  Company Number: None

PATIENT
  Age: 53 Year
  Sex: Male

DRUGS (1)
  1. AMLODIPINE BESYLATE [Suspect]
     Active Substance: AMLODIPINE BESYLATE
     Indication: Cardiovascular disorder
     Dosage: UNK
     Route: 048
     Dates: start: 20070907, end: 20150529

REACTIONS (5)
  - Onychalgia [Recovering/Resolving]
  - Lichen planus [Recovering/Resolving]
  - Nail dystrophy [Recovering/Resolving]
  - Nail discolouration [Recovering/Resolving]
  - Nail hypertrophy [Recovering/Resolving]

NARRATIVE: CASE EVENT DATE: 20080101
